FAERS Safety Report 10055670 (Version 1)
Quarter: 2014Q2

REPORT INFORMATION
  Report Type: Spontaneous
  Country: US (occurrence: None)
  Receive Date: 20140402
  Receipt Date: 20140402
  Transmission Date: 20141212
  Serious: No
  Sender: FDA-Public Use
  Company Number: None

PATIENT
  Age: 15 Year
  Sex: Male
  Weight: 54.43 kg

DRUGS (5)
  1. DUAC [Suspect]
     Indication: ACNE
     Route: 061
     Dates: start: 20131204, end: 20130906
  2. METHYLPHENIDATE [Concomitant]
  3. DESONIDE [Concomitant]
  4. INTUNIV [Concomitant]
  5. AMOXICILLIN [Concomitant]

REACTIONS (2)
  - Blepharitis [None]
  - Erythema of eyelid [None]
